FAERS Safety Report 7578422-X (Version None)
Quarter: 2011Q2

REPORT INFORMATION
  Report Type: 
  Country: None (occurrence: None)
  Receive Date: 20110622
  Receipt Date: 20110610
  Transmission Date: 20111010
  Serious: Yes (Hospitalization, Other)
  Sender: FDA-Public Use
  Company Number: US-2011-10382

PATIENT
  Age: 42 Year
  Sex: Male

DRUGS (2)
  1. BUSULFEX [Suspect]
     Indication: CORD BLOOD TRANSPLANT THERAPY
     Dosage: 3.2 MG/KG, DAILY DOSE, INTRAVENOUS
     Route: 042
     Dates: start: 20070101
  2. FLUDARA [Suspect]
     Indication: CORD BLOOD TRANSPLANT THERAPY
     Dosage: 30 MG/M2, DAILY DOSE, INTRAVENOUS
     Route: 042
     Dates: start: 20070101

REACTIONS (8)
  - PSEUDOMONAS TEST POSITIVE [None]
  - VENOOCCLUSIVE DISEASE [None]
  - CULTURE POSITIVE [None]
  - NEUTROPENIA [None]
  - HISTIOCYTOSIS HAEMATOPHAGIC [None]
  - PHARYNGITIS [None]
  - TRANSPLANT FAILURE [None]
  - SEPSIS [None]
